FAERS Safety Report 21691052 (Version 3)
Quarter: 2023Q1

REPORT INFORMATION
  Report Type: Report from Study
  Country: US (occurrence: US)
  Receive Date: 20221207
  Receipt Date: 20230219
  Transmission Date: 20230418
  Serious: No
  Sender: FDA-Public Use
  Company Number: US-002147023-NVSC2022US278449

PATIENT
  Age: 52 Year
  Sex: Female

DRUGS (1)
  1. KESIMPTA [Suspect]
     Active Substance: OFATUMUMAB
     Indication: Multiple sclerosis
     Dosage: UNK UNK, QMO
     Route: 058
     Dates: start: 20211027

REACTIONS (3)
  - Immune system disorder [Unknown]
  - Influenza like illness [Unknown]
  - Influenza [Unknown]

NARRATIVE: CASE EVENT DATE: 20221128
